FAERS Safety Report 25389102 (Version 1)
Quarter: 2025Q2

REPORT INFORMATION
  Report Type: Spontaneous
  Country: PT (occurrence: PT)
  Receive Date: 20250603
  Receipt Date: 20250603
  Transmission Date: 20250716
  Serious: No
  Sender: ALKEM
  Company Number: PT-ALKEM LABORATORIES LIMITED-PT-ALKEM-2024-19663

PATIENT
  Age: 65 Year
  Sex: Male

DRUGS (1)
  1. OLMESARTAN [Suspect]
     Active Substance: OLMESARTAN
     Indication: Product used for unknown indication
     Route: 065

REACTIONS (1)
  - Intestinal mucosal atrophy [Unknown]
